FAERS Safety Report 9188605 (Version 1)
Quarter: 2013Q1

REPORT INFORMATION
  Report Type: Spontaneous
  Country: US (occurrence: US)
  Receive Date: 20130325
  Receipt Date: 20130325
  Transmission Date: 20140127
  Serious: No
  Sender: FDA-Public Use
  Company Number: US-PFIZER INC-2013095726

PATIENT
  Age: 63 Year
  Sex: Female
  Weight: 90.7 kg

DRUGS (3)
  1. CELEBREX [Suspect]
     Indication: AUTOIMMUNE DISORDER
     Dosage: 200 MG, 1X/DAY
     Route: 048
  2. METHOTREXATE [Concomitant]
     Dosage: ONCE A WEEK
  3. SYNTHROID [Concomitant]
     Indication: THYROID DISORDER
     Dosage: 0.1 MG, UNK

REACTIONS (1)
  - Drug ineffective [Unknown]
